FAERS Safety Report 7090111-7 (Version None)
Quarter: 2010Q4

REPORT INFORMATION
  Report Type: 
  Country: None (occurrence: None)
  Receive Date: 20101105
  Receipt Date: 20101105
  Transmission Date: 20110411
  Serious: No
  Sender: FDA-Public Use
  Company Number: None

PATIENT
  Sex: Female
  Weight: 54.4316 kg

DRUGS (2)
  1. MULTAQ [Suspect]
     Indication: ATRIAL FIBRILLATION
     Dates: start: 20101004, end: 20101025
  2. MULTAQ [Suspect]
     Indication: HYPERTENSION
     Dates: start: 20101004, end: 20101025

REACTIONS (1)
  - RASH PRURITIC [None]
